FAERS Safety Report 6743208-2 (Version None)
Quarter: 2010Q2

REPORT INFORMATION
  Report Type: 
  Country: None (occurrence: None)
  Receive Date: 20100527
  Receipt Date: 20100517
  Transmission Date: 20101027
  Serious: Yes (Death, Other)
  Sender: FDA-Public Use
  Company Number: US-PURDUE-USA-2010-0041992

PATIENT
  Sex: Female

DRUGS (1)
  1. OXYCONTIN [Suspect]
     Indication: PAIN
     Dosage: UNK
     Dates: start: 20001220, end: 20020711

REACTIONS (7)
  - ALCOHOLISM [None]
  - ASTHENIA [None]
  - ASTHMA [None]
  - DRUG DEPENDENCE [None]
  - HEPATIC CIRRHOSIS [None]
  - HEPATITIS C [None]
  - TOBACCO ABUSE [None]
